FAERS Safety Report 7968025-7 (Version None)
Quarter: 2011Q4

REPORT INFORMATION
  Report Type: 
  Country: None (occurrence: None)
  Receive Date: 20111209
  Receipt Date: 20111128
  Transmission Date: 20120403
  Serious: Yes (Death)
  Sender: FDA-Public Use
  Company Number: HR-ACTELION-A-CH2011-57659

PATIENT
  Age: 56 Year
  Sex: Male

DRUGS (3)
  1. TRACLEER [Suspect]
     Dosage: 62.5 MG, BID
     Route: 048
     Dates: start: 20110430, end: 20110531
  2. TRACLEER [Suspect]
     Indication: PULMONARY HYPERTENSION
     Dosage: 125 MG, BID
     Route: 048
     Dates: start: 20110601, end: 20111110
  3. REVATIO [Concomitant]

REACTIONS (1)
  - SUDDEN DEATH [None]
